FAERS Safety Report 7497125-3 (Version None)
Quarter: 2011Q2

REPORT INFORMATION
  Report Type: 
  Country: None (occurrence: None)
  Receive Date: 20110523
  Receipt Date: 20110519
  Transmission Date: 20111010
  Serious: Yes (Hospitalization, Disabling, Other)
  Sender: FDA-Public Use
  Company Number: US-TEVA-282355USA

PATIENT
  Sex: Male

DRUGS (1)
  1. PROPOFOL [Suspect]

REACTIONS (2)
  - PRODUCT CONTAMINATION MICROBIAL [None]
  - BRAIN INJURY [None]
